FAERS Safety Report 7466778-8 (Version None)
Quarter: 2011Q2

REPORT INFORMATION
  Report Type: 
  Country: None (occurrence: None)
  Receive Date: 20110505
  Receipt Date: 20110505
  Transmission Date: 20111010
  Serious: No
  Sender: FDA-Public Use
  Company Number: None

PATIENT
  Sex: Female
  Weight: 89.8122 kg

DRUGS (1)
  1. VALACYCLOVIR [Suspect]
     Indication: HERPES VIRUS INFECTION
     Dosage: 500MG 1-2X DAILY P.O.
     Route: 048
     Dates: start: 20110409, end: 20110424

REACTIONS (2)
  - PRODUCT SUBSTITUTION ISSUE [None]
  - NO THERAPEUTIC RESPONSE [None]
